FAERS Safety Report 5016481-9 (Version None)
Quarter: 2006Q2

REPORT INFORMATION
  Report Type: 
  Country: None (occurrence: None)
  Receive Date: 20060602
  Receipt Date: 20060523
  Transmission Date: 20061013
  Serious: Yes (Hospitalization)
  Sender: FDA-Public Use
  Company Number: PHEH2006US06716

PATIENT
  Age: 73 Year
  Sex: Male

DRUGS (3)
  1. EXJADE [Suspect]
     Indication: MYELODYSPLASTIC SYNDROME
     Dosage: UNK, UNK
     Dates: start: 20060511
  2. FLOMAX [Concomitant]
  3. ATENOLOL [Concomitant]
     Dosage: 25 MG, UNK

REACTIONS (6)
  - BLOOD URINE PRESENT [None]
  - CATHETER PLACEMENT [None]
  - PAIN [None]
  - PLATELET COUNT DECREASED [None]
  - URETHRAL HAEMORRHAGE [None]
  - URINARY RETENTION [None]
